FAERS Safety Report 23488318 (Version 2)
Quarter: 2024Q2

REPORT INFORMATION
  Report Type: Spontaneous
  Country: US (occurrence: US)
  Receive Date: 20240206
  Receipt Date: 20240429
  Transmission Date: 20240716
  Serious: No
  Sender: FDA-Public Use
  Company Number: US-SA-SAC20240130001065

PATIENT
  Age: 26 Year
  Sex: Male

DRUGS (1)
  1. DUPIXENT [Suspect]
     Active Substance: DUPILUMAB
     Indication: Dermatitis
     Dosage: 300 MG, QOW
     Route: 058
     Dates: end: 20231209

REACTIONS (5)
  - Eczema [Recovering/Resolving]
  - Pruritus [Unknown]
  - Therapeutic response shortened [Recovering/Resolving]
  - Product use in unapproved indication [Unknown]
  - Therapeutic product effect incomplete [Unknown]
